FAERS Safety Report 8988855 (Version 2)
Quarter: 2013Q1

REPORT INFORMATION
  Report Type: Spontaneous
  Country: US (occurrence: US)
  Receive Date: 20121228
  Receipt Date: 20130322
  Transmission Date: 20140127
  Serious: Yes (Other)
  Sender: FDA-Public Use
  Company Number: US-TEVA-377988USA

PATIENT
  Sex: Female
  Weight: 70.37 kg

DRUGS (5)
  1. COPAXONE [Suspect]
     Indication: RELAPSING-REMITTING MULTIPLE SCLEROSIS
     Dosage: 20 MILLIGRAM DAILY;
     Route: 058
     Dates: start: 20111102
  2. CYMBALTA [Concomitant]
     Indication: BIPOLAR DISORDER
  3. LAMICTAL [Concomitant]
     Indication: BIPOLAR DISORDER
  4. ABILIFY [Concomitant]
     Indication: BIPOLAR DISORDER
  5. TRAZODONE [Concomitant]
     Indication: BIPOLAR DISORDER

REACTIONS (2)
  - Paranoia [Not Recovered/Not Resolved]
  - Mental disorder [Unknown]
